FAERS Safety Report 16001156 (Version 1)
Quarter: 2019Q1

REPORT INFORMATION
  Report Type: Spontaneous
  Country: US (occurrence: US)
  Receive Date: 20190225
  Receipt Date: 20190225
  Transmission Date: 20190418
  Serious: No
  Sender: FDA-Public Use
  Company Number: US-LEXICON PHARMACEUTICALS, INC-19-1606-00149

PATIENT
  Sex: Female

DRUGS (12)
  1. TELOTRISTAT ETHYL [Suspect]
     Active Substance: TELOTRISTAT ETHYL
     Indication: CARCINOID TUMOUR
     Route: 048
     Dates: start: 20170801
  2. MECLIZINE [Concomitant]
     Active Substance: MECLIZINE HYDROCHLORIDE
  3. LOPERAMIDE [Concomitant]
     Active Substance: LOPERAMIDE
  4. CALCIUM [Concomitant]
     Active Substance: CALCIUM
  5. LOSARTAN. [Concomitant]
     Active Substance: LOSARTAN
  6. ANASTROZOLE. [Concomitant]
     Active Substance: ANASTROZOLE
  7. AFINITOR [Concomitant]
     Active Substance: EVEROLIMUS
  8. ZOFRAN [Concomitant]
     Active Substance: ONDANSETRON HYDROCHLORIDE
  9. DEXAMETHASON [Concomitant]
     Active Substance: DEXAMETHASONE
  10. PERCOCET [Concomitant]
     Active Substance: ACETAMINOPHEN\OXYCODONE HYDROCHLORIDE
  11. XGEVA [Concomitant]
     Active Substance: DENOSUMAB
  12. OCTREOTIDE. [Concomitant]
     Active Substance: OCTREOTIDE

REACTIONS (2)
  - Drug ineffective [Unknown]
  - Off label use [Unknown]
